FAERS Safety Report 24702135 (Version 1)
Quarter: 2024Q4

REPORT INFORMATION
  Report Type: Spontaneous
  Country: FR (occurrence: FR)
  Receive Date: 20241205
  Receipt Date: 20241205
  Transmission Date: 20250115
  Serious: Yes (Other)
  Sender: SAMSUNG BIOEPIS
  Company Number: FR-SAMSUNG BIOEPIS-SB-2024-29130

PATIENT
  Age: 69 Year
  Sex: Female

DRUGS (1)
  1. IMRALDI [Suspect]
     Active Substance: ADALIMUMAB
     Indication: Polyarthritis
     Dosage: 40 MG/0.4 ML (HIGH C.);
     Route: 058
     Dates: start: 202303

REACTIONS (3)
  - Arrhythmia [Unknown]
  - Off label use [Unknown]
  - Device malfunction [Unknown]
